FAERS Safety Report 7018862-0 (Version None)
Quarter: 2010Q3

REPORT INFORMATION
  Report Type: 
  Country: None (occurrence: None)
  Receive Date: 20100928
  Receipt Date: 20100923
  Transmission Date: 20110219
  Serious: Yes (Death, Hospitalization)
  Sender: FDA-Public Use
  Company Number: US-ABBOTT-10P-163-0672557-00

PATIENT
  Sex: Female
  Weight: 44.492 kg

DRUGS (5)
  1. ZEMPLAR [Suspect]
     Indication: RENAL FAILURE
     Dates: start: 20090101, end: 20100401
  2. PLAVIX [Concomitant]
     Indication: PRODUCT USED FOR UNKNOWN INDICATION
     Dates: end: 20100401
  3. ASPIRIN [Concomitant]
     Indication: PRODUCT USED FOR UNKNOWN INDICATION
  4. SINEQUAN [Concomitant]
     Indication: INSOMNIA
  5. HYDROCODONE [Concomitant]
     Indication: PAIN

REACTIONS (4)
  - DYSARTHRIA [None]
  - GAIT DISTURBANCE [None]
  - HYPOPHAGIA [None]
  - RENAL FAILURE CHRONIC [None]
